FAERS Safety Report 6679810-6 (Version None)
Quarter: 2010Q2

REPORT INFORMATION
  Report Type: 
  Country: None (occurrence: None)
  Receive Date: 20100413
  Receipt Date: 20090610
  Transmission Date: 20101027
  Serious: No
  Sender: FDA-Public Use
  Company Number: BR-ASTRAZENECA-2009UW15067

PATIENT
  Age: 57 Year
  Sex: Female

DRUGS (2)
  1. ATENOLOL [Suspect]
     Indication: ARRHYTHMIA
     Route: 048
     Dates: start: 20090606, end: 20090609
  2. ATENOLOL [Suspect]
     Route: 048
     Dates: start: 20090610

REACTIONS (4)
  - BLOOD PRESSURE FLUCTUATION [None]
  - EMOTIONAL DISORDER [None]
  - HYPERSOMNIA [None]
  - INCORRECT DRUG DOSAGE FORM ADMINISTERED [None]
